FAERS Safety Report 17798774 (Version 1)
Quarter: 2020Q2

REPORT INFORMATION
  Report Type: Other
  Country: CA (occurrence: CA)
  Receive Date: 20200518
  Receipt Date: 20200518
  Transmission Date: 20200714
  Serious: Yes (Other)
  Sender: FDA-Public Use
  Company Number: CA-BECTON DICKINSON-2020BDN00132

PATIENT
  Age: 42 Year
  Sex: Female
  Weight: 81 kg

DRUGS (20)
  1. ENBREL [Suspect]
     Active Substance: ETANERCEPT
     Indication: RHEUMATOID ARTHRITIS
     Route: 058
  2. SIMPONI [Suspect]
     Active Substance: GOLIMUMAB
     Route: 058
  3. COENZYME Q10 [Concomitant]
     Active Substance: UBIDECARENONE
  4. PANTOPRAZOLE [Concomitant]
     Active Substance: PANTOPRAZOLE
  5. TYLENOL [Concomitant]
     Active Substance: ACETAMINOPHEN
  6. ARAVA [Suspect]
     Active Substance: LEFLUNOMIDE
  7. NUTRASEA [Concomitant]
  8. IBUPROFEN. [Concomitant]
     Active Substance: IBUPROFEN
  9. PREDNISONE. [Concomitant]
     Active Substance: PREDNISONE
  10. VENTOLIN [Concomitant]
     Active Substance: ALBUTEROL SULFATE
  11. VITAMIN C [Concomitant]
     Active Substance: ASCORBIC ACID
  12. ACTEMRA [Suspect]
     Active Substance: TOCILIZUMAB
  13. CIMZIA [Suspect]
     Active Substance: CERTOLIZUMAB PEGOL
     Indication: RHEUMATOID ARTHRITIS
     Dosage: 200 MG
     Route: 058
  14. METHOTREXATE. [Suspect]
     Active Substance: METHOTREXATE
  15. ORENCIA [Suspect]
     Active Substance: ABATACEPT
  16. PERCOCET [Suspect]
     Active Substance: ACETAMINOPHEN\OXYCODONE HYDROCHLORIDE
  17. ZOPICLONE [Concomitant]
     Active Substance: ZOPICLONE
  18. CHLORAPREP [Suspect]
     Active Substance: CHLORHEXIDINE GLUCONATE\ISOPROPYL ALCOHOL
     Route: 061
  19. HIDROXICLOROQUINA [Concomitant]
     Active Substance: HYDROXYCHLOROQUINE
  20. REACTINE [Concomitant]

REACTIONS (21)
  - Back pain [Unknown]
  - Diarrhoea [Unknown]
  - Ear pain [Unknown]
  - Lower respiratory tract infection [Unknown]
  - Respiratory disorder [Unknown]
  - Headache [Unknown]
  - Insomnia [Unknown]
  - Urticaria [Unknown]
  - Abdominal pain upper [Unknown]
  - Off label use [Unknown]
  - Peripheral swelling [Unknown]
  - Rash [Unknown]
  - Vomiting [Unknown]
  - Body temperature increased [Unknown]
  - Sinusitis [Unknown]
  - Joint swelling [Unknown]
  - Pain [Unknown]
  - Night sweats [Unknown]
  - Asthenia [Unknown]
  - Muscle spasticity [Unknown]
  - Pruritus [Unknown]
